FAERS Safety Report 8419870-5 (Version None)
Quarter: 2012Q2

REPORT INFORMATION
  Report Type: 
  Country: None (occurrence: None)
  Receive Date: 20120323
  Receipt Date: 20111117
  Transmission Date: 20120825
  Serious: Yes (Other)
  Sender: FDA-Public Use
  Company Number: 163-21880-11112679

PATIENT
  Age: 59 Year
  Sex: Female
  Weight: 60.3284 kg

DRUGS (9)
  1. OMEPRAZOLE [Concomitant]
  2. NAPROXEN [Concomitant]
  3. REVLIMID [Suspect]
     Indication: MULTIPLE MYELOMA
     Dosage: 25 MG, DAYS 1-21 OF 28, PO ; 25 MG, DAYS 1-21 OF 28, PO
     Route: 048
     Dates: start: 20110624, end: 20110816
  4. REVLIMID [Suspect]
     Indication: MULTIPLE MYELOMA
     Dosage: 25 MG, DAYS 1-21 OF 28, PO ; 25 MG, DAYS 1-21 OF 28, PO
     Route: 048
     Dates: start: 20111117
  5. CLONIDINE [Concomitant]
  6. ENALAPRIL MALEATE [Concomitant]
  7. FERROUS SULFATE TAB [Concomitant]
  8. ATORVASTATIN [Concomitant]
  9. GLIPIZIDE [Concomitant]

REACTIONS (1)
  - HYPERSENSITIVITY [None]
